FAERS Safety Report 23462002 (Version 1)
Quarter: 2024Q1

REPORT INFORMATION
  Report Type: Spontaneous
  Country: US (occurrence: US)
  Receive Date: 20240131
  Receipt Date: 20240131
  Transmission Date: 20240410
  Serious: Yes (Life-Threatening, Hospitalization)
  Sender: FDA-Public Use
  Company Number: US-BAUSCH-BL-2024-001187

PATIENT
  Age: 63 Year
  Sex: Female

DRUGS (10)
  1. MINOCYCLINE [Suspect]
     Active Substance: MINOCYCLINE HYDROCHLORIDE
     Indication: Lyme arthritis
     Route: 065
  2. MINOCYCLINE [Suspect]
     Active Substance: MINOCYCLINE HYDROCHLORIDE
     Dosage: RE-STARTED
     Route: 065
  3. CEFDINIR [Suspect]
     Active Substance: CEFDINIR
     Indication: Lyme arthritis
     Route: 065
  4. CEFDINIR [Suspect]
     Active Substance: CEFDINIR
     Dosage: RE-STARTED
     Route: 065
  5. FLAGYL [Suspect]
     Active Substance: METRONIDAZOLE\METRONIDAZOLE HYDROCHLORIDE
     Indication: Lyme arthritis
     Route: 065
  6. FLAGYL [Suspect]
     Active Substance: METRONIDAZOLE\METRONIDAZOLE HYDROCHLORIDE
     Dosage: RE-STARTED
     Route: 065
  7. BACTRIM [Suspect]
     Active Substance: SULFAMETHOXAZOLE\TRIMETHOPRIM
     Indication: Lyme arthritis
     Route: 065
  8. LAMICTAL [Concomitant]
     Active Substance: LAMOTRIGINE
     Indication: Lyme arthritis
     Route: 065
  9. MALARONE [Concomitant]
     Active Substance: ATOVAQUONE\PROGUANIL HYDROCHLORIDE
     Indication: Lyme arthritis
     Route: 065
  10. DIETARY SUPPLEMENT [Concomitant]
     Active Substance: DIETARY SUPPLEMENT
     Indication: Lyme arthritis
     Route: 065

REACTIONS (1)
  - Vanishing bile duct syndrome [Not Recovered/Not Resolved]
